FAERS Safety Report 5896951-1 (Version None)
Quarter: 2008Q3

REPORT INFORMATION
  Report Type: 
  Country: None (occurrence: None)
  Receive Date: 20080924
  Receipt Date: 20080714
  Transmission Date: 20090109
  Serious: Yes (Death)
  Sender: FDA-Public Use
  Company Number: US-ASTRAZENECA-2008UW06245

PATIENT
  Age: 66 Year
  Sex: Female
  Weight: 75.3 kg

DRUGS (5)
  1. SEROQUEL [Suspect]
     Indication: BIPOLAR DISORDER
     Route: 048
     Dates: start: 20060101
  2. LAMICTAL [Concomitant]
  3. AMBIEN [Concomitant]
  4. LIPITOR [Concomitant]
  5. BENICAR [Concomitant]

REACTIONS (1)
  - ACCIDENTAL OVERDOSE [None]
